FAERS Safety Report 16889663 (Version 1)
Quarter: 2019Q4

REPORT INFORMATION
  Report Type: Spontaneous
  Country: IT (occurrence: IT)
  Receive Date: 20191007
  Receipt Date: 20191007
  Transmission Date: 20200122
  Serious: Yes (Hospitalization)
  Sender: FDA-Public Use
  Company Number: IT-PFIZER INC-2019425004

PATIENT
  Age: 48 Year
  Sex: Male

DRUGS (1)
  1. ZITROMAX [Suspect]
     Active Substance: AZITHROMYCIN
     Indication: INFLUENZA
     Dosage: 500 MG, SINGLE
     Route: 048
     Dates: start: 20190830, end: 20190830

REACTIONS (3)
  - Tachycardia [Recovering/Resolving]
  - Product use in unapproved indication [Unknown]
  - Off label use [Unknown]

NARRATIVE: CASE EVENT DATE: 20190830
